FAERS Safety Report 17653049 (Version 7)
Quarter: 2021Q3

REPORT INFORMATION
  Report Type: Report from Study
  Country: DE (occurrence: DE)
  Receive Date: 20200409
  Receipt Date: 20210728
  Transmission Date: 20211014
  Serious: Yes (Hospitalization, Other)
  Sender: FDA-Public Use
  Company Number: NVSC2020DE095876

PATIENT
  Sex: Female

DRUGS (15)
  1. PANTOPRAZOLE [Concomitant]
     Active Substance: PANTOPRAZOLE
     Indication: PRODUCT USED FOR UNKNOWN INDICATION
     Dosage: 40 MG, QD (1?0?0) (1X DAILY (MORNING))
     Route: 065
  2. ATORVASTATIN [Concomitant]
     Active Substance: ATORVASTATIN
     Indication: PRODUCT USED FOR UNKNOWN INDICATION
     Dosage: 10 MG, QD (1X DAILY (EVENING))
     Route: 065
  3. FOLIC ACID. [Concomitant]
     Active Substance: FOLIC ACID
     Indication: PRODUCT USED FOR UNKNOWN INDICATION
     Dosage: 5 MG, QD (1X DAILY (MORNING))
     Route: 065
  4. DEKRISTOL [Concomitant]
     Active Substance: CHOLECALCIFEROL
     Indication: PRODUCT USED FOR UNKNOWN INDICATION
     Dosage: 20000 IU, QW
     Route: 065
  5. CLEXANE [Concomitant]
     Active Substance: ENOXAPARIN SODIUM
     Indication: PRODUCT USED FOR UNKNOWN INDICATION
     Dosage: 40 MG, QD (1X DAILY (EVENING))
     Route: 065
  6. METOPROLOL. [Concomitant]
     Active Substance: METOPROLOL
     Dosage: 23.75 MG, BID (2?0?1) (1X DAILY (MORNING))
     Route: 065
  7. NOVALGIN [Concomitant]
     Indication: PRODUCT USED FOR UNKNOWN INDICATION
     Dosage: 500 MG, BID (2X DAILY (MORNING AND EVENING))
     Route: 065
  8. METOPROLOL. [Concomitant]
     Active Substance: METOPROLOL
     Indication: PRODUCT USED FOR UNKNOWN INDICATION
     Dosage: 23.75 MG, QD (1X DAILY (EVENING))
     Route: 065
  9. TORASEMID [Concomitant]
     Active Substance: TORSEMIDE
     Indication: PRODUCT USED FOR UNKNOWN INDICATION
     Dosage: 10 MG, BID (2X DAILY (MORNING AND NOON))
     Route: 065
  10. KISQALI [Suspect]
     Active Substance: RIBOCICLIB
     Indication: BREAST CANCER METASTATIC
     Dosage: 600 MG (21 DAYS INTAKE, 7 DAYS PAUSE)
     Route: 048
     Dates: start: 20180119, end: 20181231
  11. KISQALI [Suspect]
     Active Substance: RIBOCICLIB
     Dosage: 600 MG, (21 DAYS INTAKE, 7 DAYS PAUSE)
     Route: 048
     Dates: start: 20190122, end: 20200525
  12. SPIRONOLACTONE. [Concomitant]
     Active Substance: SPIRONOLACTONE
     Indication: PRODUCT USED FOR UNKNOWN INDICATION
     Dosage: 25 MG, QD (1X DAILY (MORNING))
     Route: 065
  13. NOVALGIN [Concomitant]
     Dosage: 500 MG, QID (4X DAILY IF NEEDED)
     Route: 065
  14. ASPIRIN. [Concomitant]
     Active Substance: ASPIRIN
     Indication: PRODUCT USED FOR UNKNOWN INDICATION
     Dosage: 100 MG, QD (DAILY (MORNING))
     Route: 065
  15. LETROZOLE. [Suspect]
     Active Substance: LETROZOLE
     Indication: BREAST CANCER METASTATIC
     Dosage: 2.5 MG, QD (MORNING)
     Route: 048
     Dates: start: 20180119

REACTIONS (26)
  - Intermittent claudication [Recovered/Resolved with Sequelae]
  - Superinfection [Unknown]
  - Aortic valve stenosis [Unknown]
  - Erysipelas [Recovered/Resolved]
  - Skin ulcer [Recovered/Resolved]
  - Osteomyelitis [Unknown]
  - Left ventricular dysfunction [Unknown]
  - Oedema peripheral [Unknown]
  - Pulmonary hypertension [Unknown]
  - Aneurysm [Unknown]
  - Coronary artery disease [Recovered/Resolved with Sequelae]
  - Metastasis [Unknown]
  - Type 2 diabetes mellitus [Unknown]
  - Peripheral arterial occlusive disease [Unknown]
  - Necrosis [Unknown]
  - Iliac artery occlusion [Unknown]
  - Skin ulcer [Not Recovered/Not Resolved]
  - Mitral valve incompetence [Unknown]
  - Basal ganglia infarction [Unknown]
  - Peripheral artery stenosis [Unknown]
  - General physical health deterioration [Not Recovered/Not Resolved]
  - Cerebral microangiopathy [Unknown]
  - Gangrene [Unknown]
  - Peripheral artery occlusion [Unknown]
  - Cognitive disorder [Unknown]
  - Cellulitis [Recovered/Resolved]

NARRATIVE: CASE EVENT DATE: 20200127
